FAERS Safety Report 8423324 (Version 6)
Quarter: 2013Q1

REPORT INFORMATION
  Report Type: Spontaneous
  Country: US (occurrence: US)
  Receive Date: 20120223
  Receipt Date: 20130321
  Transmission Date: 20140127
  Serious: Yes (Hospitalization, Other)
  Sender: FDA-Public Use
  Company Number: US-ASTRAZENECA-2012SE10362

PATIENT
  Age: 50 Year
  Sex: Female
  Weight: 63.5 kg

DRUGS (14)
  1. SEROQUEL [Suspect]
     Indication: BIPOLAR DISORDER
     Route: 048
  2. SEROQUEL [Suspect]
     Indication: BIPOLAR DISORDER
     Route: 048
     Dates: start: 201109
  3. SEROQUEL [Suspect]
     Indication: BIPOLAR DISORDER
     Route: 048
  4. NEXIUM [Suspect]
     Indication: GASTROOESOPHAGEAL REFLUX DISEASE
     Route: 048
     Dates: start: 2003
  5. KLONOPIN [Suspect]
     Indication: BIPOLAR DISORDER
     Route: 048
     Dates: start: 201109
  6. KLONOPIN [Suspect]
     Indication: ANXIETY
     Route: 048
     Dates: start: 201109
  7. PAXIL [Concomitant]
     Indication: BIPOLAR DISORDER
     Route: 048
     Dates: start: 201208
  8. IBUPROFEN [Concomitant]
     Indication: NECK PAIN
     Route: 048
     Dates: start: 2013
  9. UNSPECIFIED INGREDIENT [Concomitant]
     Indication: CHRONIC OBSTRUCTIVE PULMONARY DISEASE
     Dosage: PRN
     Route: 055
  10. PRO-AIR [Concomitant]
     Indication: CHRONIC OBSTRUCTIVE PULMONARY DISEASE
     Dosage: TWO PUFFS, PRN
     Route: 055
  11. MAGNESIUM [Concomitant]
     Dosage: DAILY
     Route: 048
  12. POTASSIUM [Concomitant]
     Dosage: DAILY
     Route: 048
  13. MVI [Concomitant]
     Dosage: DAILY
     Route: 048
  14. STRESS VITAMIN [Concomitant]
     Dosage: DAILY
     Route: 048

REACTIONS (21)
  - Thermal burn [Unknown]
  - Pneumonia [Recovered/Resolved]
  - Mania [Unknown]
  - Hypertension [Unknown]
  - Asthma [Unknown]
  - Bronchitis [Unknown]
  - Chronic obstructive pulmonary disease [Unknown]
  - Weight fluctuation [Not Recovered/Not Resolved]
  - Body height decreased [Not Recovered/Not Resolved]
  - Gait disturbance [Not Recovered/Not Resolved]
  - Pain in extremity [Not Recovered/Not Resolved]
  - Malaise [Unknown]
  - Arthralgia [Not Recovered/Not Resolved]
  - Insomnia [Recovered/Resolved]
  - Hyperhidrosis [Unknown]
  - Dyspnoea [Unknown]
  - Nightmare [Unknown]
  - Drug withdrawal syndrome [Unknown]
  - Intentional drug misuse [Unknown]
  - Drug dispensing error [Unknown]
  - Drug dose omission [Unknown]
